FAERS Safety Report 4577607-4 (Version None)
Quarter: 2005Q1

REPORT INFORMATION
  Report Type: 
  Country: None (occurrence: None)
  Receive Date: 20050208
  Receipt Date: 20050202
  Transmission Date: 20050727
  Serious: Yes (Hospitalization)
  Sender: FDA-Public Use
  Company Number: 2005PK00203

PATIENT
  Age: 56 Year

DRUGS (3)
  1. IRESSA [Suspect]
     Indication: NON-SMALL CELL LUNG CANCER
  2. ENOXAPARIN SODIUM [Suspect]
  3. ACETYLSALICYLIC ACID SRT [Suspect]

REACTIONS (3)
  - BLADDER TAMPONADE [None]
  - DRUG INTERACTION [None]
  - URINARY BLADDER HAEMORRHAGE [None]
